FAERS Safety Report 15969801 (Version 1)
Quarter: 2019Q1

REPORT INFORMATION
  Report Type: Report from Study
  Country: US (occurrence: US)
  Receive Date: 20190215
  Receipt Date: 20190215
  Transmission Date: 20190418
  Serious: No
  Sender: FDA-Public Use
  Company Number: PHEH2019US007079

PATIENT
  Age: 47 Year
  Sex: Male

DRUGS (1)
  1. GLATOPA [Suspect]
     Active Substance: GLATIRAMER ACETATE
     Indication: MULTIPLE SCLEROSIS
     Dosage: 40 MG, TID, ROTATES SITES
     Route: 058
     Dates: start: 201811

REACTIONS (2)
  - Acne [Unknown]
  - Injection site swelling [Unknown]

NARRATIVE: CASE EVENT DATE: 201811
